FAERS Safety Report 8424063-1 (Version None)
Quarter: 2012Q2

REPORT INFORMATION
  Report Type: 
  Country: None (occurrence: None)
  Receive Date: 20120608
  Receipt Date: 20110512
  Transmission Date: 20120825
  Serious: No
  Sender: FDA-Public Use
  Company Number: US-ASTRAZENECA-2011SE28551

PATIENT
  Sex: Female

DRUGS (16)
  1. IPRATROPIUM BROMIDE [Suspect]
     Dates: start: 20110426
  2. ALBUTEROL [Suspect]
  3. BROVANA [Suspect]
  4. UNSPECIFIED BREATHING TREATMENTS [Suspect]
  5. BUDESONIDE [Suspect]
     Route: 055
  6. IPRATROPIUM BROMIDE [Suspect]
     Dates: end: 20110424
  7. NASONEX [Suspect]
     Dates: start: 20110426
  8. ASTEPRO [Suspect]
     Dates: end: 20110424
  9. SPIRIVA [Suspect]
     Dates: start: 20110426
  10. NASONEX [Suspect]
     Dates: end: 20110424
  11. OTHER ANTI-HISTAMATICS, INHALANTS [Concomitant]
  12. ALLEGRA [Suspect]
     Indication: HYPERSENSITIVITY
     Route: 048
     Dates: start: 20110401
  13. PREV MEDS [Concomitant]
  14. SPIRIVA [Suspect]
     Dates: end: 20110424
  15. ASTEPRO [Suspect]
     Dates: start: 20110426
  16. ADVAIR DISKUS 100/50 [Suspect]
     Dates: end: 20110401

REACTIONS (4)
  - CHEST PAIN [None]
  - DYSPEPSIA [None]
  - BLOOD PRESSURE INCREASED [None]
  - HEART RATE INCREASED [None]
